FAERS Safety Report 8211477-8 (Version None)
Quarter: 2012Q1

REPORT INFORMATION
  Report Type: 
  Country: None (occurrence: None)
  Receive Date: 20120315
  Receipt Date: 20120315
  Transmission Date: 20120608
  Serious: Yes (Other)
  Sender: FDA-Public Use
  Company Number: US-PFIZER INC-2012054379

PATIENT
  Sex: Female

DRUGS (4)
  1. KARIVA [Suspect]
     Indication: MENSTRUATION IRREGULAR
     Dosage: UNK
     Dates: start: 20120201
  2. ZOLOFT [Suspect]
     Indication: PANIC ATTACK
     Dosage: 25 MG, DAILY
     Route: 048
     Dates: start: 20120201
  3. ZOLOFT [Suspect]
     Indication: ANXIETY
  4. ZOLOFT [Suspect]
     Indication: DEPRESSION

REACTIONS (5)
  - SOMNOLENCE [None]
  - NAUSEA [None]
  - BEDRIDDEN [None]
  - PANIC ATTACK [None]
  - DIARRHOEA [None]
